FAERS Safety Report 11152078 (Version 1)
Quarter: 2015Q2

REPORT INFORMATION
  Report Type: Spontaneous
  Country: US (occurrence: US)
  Receive Date: 20150601
  Receipt Date: 20150601
  Transmission Date: 20150821
  Serious: No
  Sender: FDA-Public Use
  Company Number: US-UPSHER-SMITH LABORATORIES, INC.-14000996

PATIENT
  Age: 67 Year
  Sex: Female

DRUGS (2)
  1. FUROSEMIDE. [Concomitant]
     Active Substance: FUROSEMIDE
     Dosage: UNK
  2. POTASSIUM CHLORIDE ER [Suspect]
     Active Substance: POTASSIUM CHLORIDE
     Indication: DIURETIC THERAPY
     Dosage: 20 MEQ, TID
     Route: 048
     Dates: end: 201303

REACTIONS (3)
  - Urinary tract obstruction [Recovered/Resolved]
  - Foreign body [Recovered/Resolved]
  - Urinary tract pain [Recovered/Resolved]

NARRATIVE: CASE EVENT DATE: 201302
